FAERS Safety Report 6311143-X (Version None)
Quarter: 2009Q3

REPORT INFORMATION
  Report Type: 
  Country: None (occurrence: None)
  Receive Date: 20090817
  Receipt Date: 20090811
  Transmission Date: 20100115
  Serious: Yes (Hospitalization)
  Sender: FDA-Public Use
  Company Number: US-PURDUE-USA-2009-0039455

PATIENT
  Sex: Female

DRUGS (1)
  1. SENOKOT [Suspect]
     Indication: CONSTIPATION
     Dosage: 2 TABLET, SINGLE
     Dates: start: 20090803

REACTIONS (6)
  - ABDOMINAL PAIN UPPER [None]
  - DRUG EXPOSURE DURING PREGNANCY [None]
  - ECTOPIC PREGNANCY WITH INTRAUTERINE DEVICE [None]
  - IMPLANT SITE INFECTION [None]
  - UTERINE SPASM [None]
  - VOMITING IN PREGNANCY [None]
